FAERS Safety Report 21285928 (Version 6)
Quarter: 2024Q1

REPORT INFORMATION
  Report Type: Spontaneous
  Country: IN (occurrence: IN)
  Receive Date: 20220902
  Receipt Date: 20240103
  Transmission Date: 20240410
  Serious: Yes (Other)
  Sender: FDA-Public Use
  Company Number: IN-PFIZER INC-PV202200054453

PATIENT
  Age: 75 Year
  Sex: Female

DRUGS (3)
  1. PALBOCICLIB [Suspect]
     Active Substance: PALBOCICLIB
     Indication: Breast cancer
     Dosage: 125 MG, ONCE A DAY
     Route: 048
     Dates: start: 20211206
  2. LETROZOLE [Concomitant]
     Active Substance: LETROZOLE
     Dosage: UNK
  3. DENOSUMAB [Concomitant]
     Active Substance: DENOSUMAB
     Dosage: UNK

REACTIONS (11)
  - Polyneuropathy [Unknown]
  - Interstitial lung disease [Unknown]
  - Asthenia [Unknown]
  - Pain in extremity [Unknown]
  - Neoplasm progression [Unknown]
  - Myalgia [Unknown]
  - Vertigo positional [Unknown]
  - Chest pain [Unknown]
  - Decreased appetite [Unknown]
  - Hypoaesthesia [Unknown]
  - Product dose omission in error [Unknown]

NARRATIVE: CASE EVENT DATE: 20220804
